FAERS Safety Report 12892679 (Version 2)
Quarter: 2016Q4

REPORT INFORMATION
  Report Type: Spontaneous
  Country: US (occurrence: US)
  Receive Date: 20161028
  Receipt Date: 20161216
  Transmission Date: 20170207
  Serious: Yes (Other)
  Sender: FDA-Public Use
  Company Number: US-DEPOMED, INC.-US-2016DEP012577

PATIENT

DRUGS (1)
  1. CAMBIA [Suspect]
     Active Substance: DICLOFENAC POTASSIUM
     Indication: PRODUCT USED FOR UNKNOWN INDICATION
     Dosage: 50 MG, 1 PACKET 1 TIME AS NEEDED
     Route: 048
     Dates: start: 20160620

REACTIONS (3)
  - Upper respiratory tract infection [Unknown]
  - Bronchitis [Unknown]
  - Pneumonia [Unknown]
